FAERS Safety Report 7326416-1 (Version None)
Quarter: 2011Q1

REPORT INFORMATION
  Report Type: 
  Country: None (occurrence: None)
  Receive Date: 20110302
  Receipt Date: 20110223
  Transmission Date: 20110831
  Serious: Yes (Other)
  Sender: FDA-Public Use
  Company Number: US-SANOFI-AVENTIS-2011SA012316

PATIENT
  Age: 28 Year
  Sex: Male

DRUGS (2)
  1. SOLOSTAR [Suspect]
     Indication: TYPE 1 DIABETES MELLITUS
  2. LANTUS [Suspect]
     Indication: TYPE 1 DIABETES MELLITUS
     Dosage: DOSE:26 UNIT(S)
     Route: 058

REACTIONS (1)
  - HYPOGLYCAEMIA [None]
